FAERS Safety Report 6845287-0 (Version None)
Quarter: 2010Q3

REPORT INFORMATION
  Report Type: 
  Country: None (occurrence: None)
  Receive Date: 20100715
  Receipt Date: 20070814
  Transmission Date: 20110219
  Serious: Yes (Other)
  Sender: FDA-Public Use
  Company Number: US-PFIZER INC-2007068716

PATIENT
  Sex: Female
  Weight: 152.27 kg

DRUGS (11)
  1. CHANTIX [Suspect]
     Indication: SMOKING CESSATION THERAPY
     Dates: start: 20070301, end: 20070601
  2. DEMADEX [Concomitant]
  3. SINGULAIR [Concomitant]
  4. ASPIRIN [Concomitant]
  5. DIOVAN [Concomitant]
  6. ZANTAC [Concomitant]
  7. HUMULIN 70/30 [Concomitant]
  8. HUMULIN R [Concomitant]
  9. FLEXERIL [Concomitant]
  10. POTASSIUM CHLORIDE [Concomitant]
  11. CALCIUM [Concomitant]

REACTIONS (2)
  - HEART RATE IRREGULAR [None]
  - PALPITATIONS [None]
